FAERS Safety Report 4265670-X (Version None)
Quarter: 2004Q1

REPORT INFORMATION
  Report Type: 
  Country: None (occurrence: None)
  Receive Date: 20040107
  Receipt Date: 20030422
  Transmission Date: 20041129
  Serious: Yes (Hospitalization)
  Sender: FDA-Public Use
  Company Number: JP-GLAXOSMITHKLINE-B0298047A

PATIENT
  Age: 32 Year
  Sex: Male

DRUGS (5)
  1. PAROXETINE [Suspect]
     Indication: DEPRESSION
     Dosage: 40MG PER DAY
     Route: 048
     Dates: end: 20030325
  2. AMOXAPINE [Suspect]
     Indication: DEPRESSION
     Dosage: 25MG PER DAY
     Route: 048
     Dates: end: 20030325
  3. SULPIRIDE [Suspect]
     Indication: DEPRESSION
     Dosage: 100MG PER DAY
     Route: 048
     Dates: end: 20030325
  4. MIANSERIN HYDROCHLORIDE [Suspect]
     Indication: DEPRESSION
     Dosage: 10MG PER DAY
     Route: 048
     Dates: end: 20030325
  5. CLOMIPRAMINE HYDROCHLORIDE [Suspect]
     Indication: DEPRESSION
     Dosage: 25MG PER DAY
     Route: 048
     Dates: end: 20030325

REACTIONS (9)
  - ALANINE AMINOTRANSFERASE INCREASED [None]
  - BACK PAIN [None]
  - DYSPNOEA [None]
  - GLYCOSYLATED HAEMOGLOBIN INCREASED [None]
  - LOSS OF CONSCIOUSNESS [None]
  - PYREXIA [None]
  - RENAL FAILURE ACUTE [None]
  - RHABDOMYOLYSIS [None]
  - SEROTONIN SYNDROME [None]
